APPROVED DRUG PRODUCT: CETIRIZINE HYDROCHLORIDE HIVES
Active Ingredient: CETIRIZINE HYDROCHLORIDE
Strength: 5MG
Dosage Form/Route: TABLET;ORAL
Application: A078862 | Product #003
Applicant: ORBION PHARMACEUTICALS PRIVATE LTD
Approved: Feb 19, 2009 | RLD: No | RS: No | Type: OTC